FAERS Safety Report 7934420-5 (Version None)
Quarter: 2011Q4

REPORT INFORMATION
  Report Type: 
  Country: None (occurrence: None)
  Receive Date: 20111122
  Receipt Date: 20111116
  Transmission Date: 20120403
  Serious: Yes (Hospitalization)
  Sender: FDA-Public Use
  Company Number: US-GLAXOSMITHKLINE-A0953413A

PATIENT
  Age: 54 Year
  Sex: Female

DRUGS (4)
  1. COREG [Suspect]
     Indication: HYPERTENSION
     Route: 048
     Dates: start: 20101201, end: 20110501
  2. KLONOPIN [Concomitant]
  3. VYVANSE [Concomitant]
  4. AMBIEN [Concomitant]

REACTIONS (4)
  - IMPAIRED SELF-CARE [None]
  - FEELING DRUNK [None]
  - ACTIVITIES OF DAILY LIVING IMPAIRED [None]
  - ABASIA [None]
